FAERS Safety Report 9031345 (Version 1)
Quarter: 2013Q1

REPORT INFORMATION
  Report Type: Spontaneous
  Country: US (occurrence: US)
  Receive Date: 20130124
  Receipt Date: 20130124
  Transmission Date: 20140127
  Serious: Yes (Death, Life-Threatening, Hospitalization)
  Sender: FDA-Public Use
  Company Number: US-009507513-1301USA010789

PATIENT
  Sex: Female

DRUGS (1)
  1. INTEGRILIN [Suspect]
     Dosage: UNK
     Route: 042
     Dates: start: 2008

REACTIONS (3)
  - Coronary artery dissection [Fatal]
  - Catheterisation cardiac [Unknown]
  - Stent placement [Unknown]
